FAERS Safety Report 25621003 (Version 1)
Quarter: 2025Q3

REPORT INFORMATION
  Report Type: Spontaneous
  Country: EU (occurrence: EU)
  Receive Date: 20250730
  Receipt Date: 20250730
  Transmission Date: 20251020
  Serious: Yes (Other)
  Sender: AMGEN
  Company Number: EU-PFIZER INC-PV202500087487

PATIENT
  Age: 68 Year
  Sex: Female

DRUGS (3)
  1. DENOSUMAB [Suspect]
     Active Substance: DENOSUMAB
     Indication: Breast neoplasm
     Dosage: 120 MG, 1 VIAL SC/4 WEEKS
     Route: 058
     Dates: start: 20240515
  2. IBRANCE [Suspect]
     Active Substance: PALBOCICLIB
     Indication: Breast neoplasm
     Route: 065
     Dates: start: 20240515
  3. LETROZOLE [Suspect]
     Active Substance: LETROZOLE
     Indication: Breast neoplasm
     Dosage: 2.5 MG, 1X/DAY, 1 TABLET IN THE MORNING DAILY
     Route: 065
     Dates: start: 20240515

REACTIONS (3)
  - Leukopenia [Unknown]
  - Neutropenia [Unknown]
  - Thrombocytopenia [Unknown]
